FAERS Safety Report 21464081 (Version 2)
Quarter: 2022Q4

REPORT INFORMATION
  Report Type: Spontaneous
  Country: FR (occurrence: None)
  Receive Date: 20221017
  Receipt Date: 20221114
  Transmission Date: 20230112
  Serious: Yes (Death)
  Sender: FDA-Public Use
  Company Number: FR-ROCHE-3200617

PATIENT
  Age: 81 Year
  Sex: Male
  Weight: 62 kg

DRUGS (9)
  1. XELODA [Suspect]
     Active Substance: CAPECITABINE
     Indication: Neuroendocrine tumour of the rectum
     Dosage: DURATION 18 DAYS
     Route: 048
     Dates: start: 20220711, end: 20220729
  2. XELODA [Suspect]
     Active Substance: CAPECITABINE
     Dosage: DURATION 5 DAYS
     Route: 048
     Dates: start: 20220711, end: 20220725
  3. TEMODAL [Suspect]
     Active Substance: TEMOZOLOMIDE
     Indication: Neuroendocrine tumour of the rectum
     Dosage: DURATION 3 DAYS
     Route: 048
     Dates: start: 20220721, end: 20220724
  4. TEMODAL [Suspect]
     Active Substance: TEMOZOLOMIDE
     Dosage: DURATION 14 DAYS
     Route: 048
     Dates: start: 20220720, end: 20220725
  5. JANUMET [Concomitant]
     Active Substance: METFORMIN HYDROCHLORIDE\SITAGLIPTIN PHOSPHATE
  6. LOVENOX [Concomitant]
     Active Substance: ENOXAPARIN SODIUM
  7. LANTUS [Concomitant]
     Active Substance: INSULIN GLARGINE
  8. NOVORAPID [Concomitant]
     Active Substance: INSULIN ASPART
  9. CYAMEMAZINE [Concomitant]
     Active Substance: CYAMEMAZINE

REACTIONS (1)
  - Encephalopathy [Fatal]

NARRATIVE: CASE EVENT DATE: 20220801
